FAERS Safety Report 20064151 (Version 1)
Quarter: 2021Q4

REPORT INFORMATION
  Report Type: Spontaneous
  Country: CN (occurrence: CN)
  Receive Date: 20211112
  Receipt Date: 20211112
  Transmission Date: 20220303
  Serious: Yes (Other)
  Sender: FDA-Public Use
  Company Number: CN-BAYER-2021A246020

PATIENT
  Age: 51 Year
  Sex: Female
  Weight: 36 kg

DRUGS (2)
  1. STIVARGA [Suspect]
     Active Substance: REGORAFENIB
     Indication: Hepatic cancer
     Dosage: 160 MG, QD
     Route: 048
     Dates: start: 20190707, end: 202004
  2. SINTILIMAB [Concomitant]
     Active Substance: SINTILIMAB
     Dosage: UNK
     Dates: start: 201907

REACTIONS (4)
  - Lung neoplasm malignant [None]
  - Mouth ulceration [Recovering/Resolving]
  - Aphthous ulcer [None]
  - Alopecia [Recovering/Resolving]

NARRATIVE: CASE EVENT DATE: 20190715
